FAERS Safety Report 4340476-1 (Version None)
Quarter: 2004Q2

REPORT INFORMATION
  Report Type: 
  Country: None (occurrence: None)
  Receive Date: 20040414
  Receipt Date: 20040406
  Transmission Date: 20050107
  Serious: No
  Sender: FDA-Public Use
  Company Number: 04P-087-0256455-00

PATIENT
  Age: 31 Year
  Sex: Male

DRUGS (3)
  1. KALETRA [Suspect]
     Indication: HIV INFECTION
     Dosage: 9 CAPSULE, 1 IN 1 D, PER ORAL
     Route: 048
     Dates: start: 20021123, end: 20021127
  2. DIDANOSINE [Concomitant]
  3. ABACAVIR SULFATE [Concomitant]

REACTIONS (1)
  - BRADYCARDIA [None]
